FAERS Safety Report 9927760 (Version 2)
Quarter: 2014Q1

REPORT INFORMATION
  Report Type: Report from Study
  Country: AU (occurrence: AU)
  Receive Date: 20140227
  Receipt Date: 20140327
  Transmission Date: 20141002
  Serious: Yes (Death)
  Sender: FDA-Public Use
  Company Number: AU-BRISTOL-MYERS SQUIBB COMPANY-20232419

PATIENT
  Age: 66 Year
  Sex: Female

DRUGS (4)
  1. YERVOY [Suspect]
     Indication: METASTATIC MALIGNANT MELANOMA
     Dosage: LAST DOSE:10/APR/13?192MG
     Dates: start: 20130903, end: 20131004
  2. MORPHINE [Concomitant]
  3. ENDONE [Concomitant]
  4. DEXAMETHASONE [Concomitant]

REACTIONS (2)
  - Malignant neoplasm progression [Fatal]
  - Malignant pleural effusion [Fatal]
